FAERS Safety Report 15306759 (Version 1)
Quarter: 2018Q3

REPORT INFORMATION
  Report Type: Report from Study
  Country: EG (occurrence: EG)
  Receive Date: 20180822
  Receipt Date: 20180822
  Transmission Date: 20181010
  Serious: Yes (Hospitalization)
  Sender: FDA-Public Use
  Company Number: PHHY2018EG073162

PATIENT
  Age: 42 Year
  Sex: Female

DRUGS (5)
  1. AROMASIN [Concomitant]
     Active Substance: EXEMESTANE
     Dosage: (2 TO 3 TABS) DF, QD
  2. FASLODEX [Concomitant]
     Active Substance: FULVESTRANT
     Indication: PRODUCT USED FOR UNKNOWN INDICATION
     Dosage: 250 MG, UNK
     Route: 030
  3. KISQALI [Suspect]
     Active Substance: RIBOCICLIB
     Indication: BREAST CANCER METASTATIC
     Dosage: 600 MG, QD (3 TABS/DAY)
     Route: 048
     Dates: start: 201804, end: 201807
  4. AFINITOR [Suspect]
     Active Substance: EVEROLIMUS
     Indication: METASTASES TO BONE
     Dosage: 5 MG, UNK
     Route: 065
  5. AFINITOR [Suspect]
     Active Substance: EVEROLIMUS
     Dosage: 10 MG, UNK
     Route: 065

REACTIONS (12)
  - Effusion [Not Recovered/Not Resolved]
  - Delirium [Not Recovered/Not Resolved]
  - Abdominal distension [Not Recovered/Not Resolved]
  - Drug ineffective [Not Recovered/Not Resolved]
  - Heart rate increased [Not Recovered/Not Resolved]
  - Incoherent [Not Recovered/Not Resolved]
  - Vertigo [Not Recovered/Not Resolved]
  - Hepatic enzyme increased [Not Recovered/Not Resolved]
  - Blood glucose decreased [Not Recovered/Not Resolved]
  - Jaundice [Not Recovered/Not Resolved]
  - Mouth ulceration [Not Recovered/Not Resolved]
  - Drug tolerance [Not Recovered/Not Resolved]

NARRATIVE: CASE EVENT DATE: 201806
